FAERS Safety Report 20255387 (Version 2)
Quarter: 2022Q1

REPORT INFORMATION
  Report Type: Spontaneous
  Country: IT (occurrence: IT)
  Receive Date: 20211230
  Receipt Date: 20220119
  Transmission Date: 20220423
  Serious: Yes (Other)
  Sender: FDA-Public Use
  Company Number: IT-CELGENE-ITA-20211207782

PATIENT
  Age: 58 Year
  Sex: Female

DRUGS (1)
  1. ABRAXANE [Suspect]
     Active Substance: PACLITAXEL
     Indication: Ovarian neoplasm
     Route: 042
     Dates: start: 20211217, end: 20211217

REACTIONS (5)
  - Loss of consciousness [Recovered/Resolved]
  - Pelvic pain [Recovered/Resolved]
  - Burning sensation [Recovered/Resolved]
  - Cyanosis [Recovered/Resolved]
  - Urinary incontinence [Recovered/Resolved]

NARRATIVE: CASE EVENT DATE: 20211217
